FAERS Safety Report 6767761-8 (Version None)
Quarter: 2010Q2

REPORT INFORMATION
  Report Type: 
  Country: None (occurrence: None)
  Receive Date: 20100614
  Receipt Date: 20100604
  Transmission Date: 20101027
  Serious: Yes (Hospitalization)
  Sender: FDA-Public Use
  Company Number: CO-ROCHE-707498

PATIENT
  Sex: Male

DRUGS (3)
  1. FUZEON [Suspect]
     Route: 058
     Dates: start: 20090101
  2. LAMIVUDINE [Concomitant]
     Route: 048
  3. LOPINAVIR/RITONAVIR [Concomitant]
     Dosage: DOSE: 200MG+50 MG
     Route: 048

REACTIONS (2)
  - CHOLECYSTITIS [None]
  - PYREXIA [None]
